FAERS Safety Report 20759018 (Version 2)
Quarter: 2022Q2

REPORT INFORMATION
  Report Type: Spontaneous
  Country: US (occurrence: US)
  Receive Date: 20220427
  Receipt Date: 20220503
  Transmission Date: 20220721
  Serious: Yes (Hospitalization, Other)
  Sender: FDA-Public Use
  Company Number: US-009507513-2204USA008217

PATIENT
  Age: 76 Year
  Sex: Male
  Weight: 75 kg

DRUGS (3)
  1. CUBICIN [Suspect]
     Active Substance: DAPTOMYCIN
     Indication: Staphylococcal bacteraemia
     Dosage: UNK
     Dates: start: 2020
  2. CUBICIN [Suspect]
     Active Substance: DAPTOMYCIN
     Indication: Peritoneal dialysis
     Dosage: 500 MILLIGRAM, EVERY 48 HOURS
     Route: 042
     Dates: start: 20220414
  3. ELIQUIS [Concomitant]
     Active Substance: APIXABAN

REACTIONS (4)
  - Staphylococcal bacteraemia [Not Recovered/Not Resolved]
  - Endocarditis bacterial [Not Recovered/Not Resolved]
  - Dialysis device insertion [Not Recovered/Not Resolved]
  - Product prescribing issue [Unknown]

NARRATIVE: CASE EVENT DATE: 20220301
